FAERS Safety Report 6604025-7 (Version None)
Quarter: 2010Q1

REPORT INFORMATION
  Report Type: 
  Country: None (occurrence: None)
  Receive Date: 20100226
  Receipt Date: 20090417
  Transmission Date: 20100710
  Serious: No
  Sender: FDA-Public Use
  Company Number: A0779403A

PATIENT
  Age: 55 Year
  Sex: Female

DRUGS (5)
  1. LAMICTAL CD [Suspect]
     Indication: EPILEPSY
     Dosage: 150MG TWICE PER DAY
     Route: 048
     Dates: start: 20000101
  2. KLONOPIN [Suspect]
     Indication: EPILEPSY
     Dosage: 1MG TWICE PER DAY
     Dates: start: 19890101
  3. UNSPECIFIED MEDICATION [Concomitant]
     Indication: MULTIPLE SCLEROSIS
  4. LEVAQUIN [Concomitant]
  5. VALTREX [Concomitant]

REACTIONS (3)
  - JUDGEMENT IMPAIRED [None]
  - PRURITUS [None]
  - RASH [None]
